FAERS Safety Report 10838847 (Version 1)
Quarter: 2015Q1

REPORT INFORMATION
  Report Type: Spontaneous
  Country: AU (occurrence: None)
  Receive Date: 20150218
  Receipt Date: 20150218
  Transmission Date: 20150721
  Serious: Yes (Hospitalization, Other)
  Sender: FDA-Public Use
  Company Number: 2015PRN00007

PATIENT
  Age: 68 Year
  Sex: Female

DRUGS (8)
  1. IRBESARTAN. [Suspect]
     Active Substance: IRBESARTAN
     Indication: HYPERTENSION
  2. GLICLAZIDE MR (GLICLAZIDE) [Concomitant]
  3. MELOXICAM. [Suspect]
     Active Substance: MELOXICAM
  4. METFORMIN (METFORMIN) UNKNOWN, UNKNOWN [Suspect]
     Active Substance: METFORMIN HYDROCHLORIDE
     Indication: TYPE 2 DIABETES MELLITUS
  5. ISOPHANE INSULIN (ISOPHANE INSULIN) [Concomitant]
  6. SODIUM PICOSULPHATE [Suspect]
     Active Substance: SODIUM PICOSULFATE
     Indication: COLONOSCOPY
  7. AMLODIPINE [Concomitant]
     Active Substance: AMLODIPINE BESYLATE
  8. INDAPAMIDE. [Suspect]
     Active Substance: INDAPAMIDE
     Indication: HYPERTENSION

REACTIONS (9)
  - Lactic acidosis [None]
  - Blood sodium decreased [None]
  - Blood chloride decreased [None]
  - Continuous haemodiafiltration [None]
  - Hypovolaemia [None]
  - Acute kidney injury [None]
  - Hypotension [None]
  - Dehydration [None]
  - Diarrhoea [None]
